FAERS Safety Report 8454949-3 (Version None)
Quarter: 2012Q2

REPORT INFORMATION
  Report Type: 
  Country: None (occurrence: None)
  Receive Date: 20120621
  Receipt Date: 20120615
  Transmission Date: 20120825
  Serious: No
  Sender: FDA-Public Use
  Company Number: US-PFIZER INC-2012146248

PATIENT
  Sex: Female
  Weight: 71 kg

DRUGS (6)
  1. SUTENT [Suspect]
     Dosage: 37.5 MG (25MG + 12.5MG)
     Dates: start: 20120521
  2. ALLEGRA [Concomitant]
     Indication: SEASONAL ALLERGY
     Dosage: UNK AS NEEDED
  3. ALLEGRA [Concomitant]
  4. SANDOSTATIN [Concomitant]
     Dosage: UNK
  5. HYDROCHLOROTHIAZIDE [Concomitant]
     Dosage: 20 OR 25MG IN THE MORNING
  6. PROTONIX [Concomitant]
     Dosage: 40 MG, 1X/DAY IN THE MORNING

REACTIONS (3)
  - INSOMNIA [None]
  - BLISTER [None]
  - SKIN DISCOMFORT [None]
